FAERS Safety Report 4349508-8 (Version None)
Quarter: 2004Q2

REPORT INFORMATION
  Report Type: 
  Country: None (occurrence: None)
  Receive Date: 20040426
  Receipt Date: 20040415
  Transmission Date: 20050107
  Serious: Yes (Hospitalization, Other)
  Sender: FDA-Public Use
  Company Number: US-JNJFOC-20040403735

PATIENT
  Age: 57 Year
  Sex: Female

DRUGS (6)
  1. DURAGESIC [Suspect]
     Indication: PAIN
     Dosage: 75 UG/HR, 1 IN 72 HOUR, TRANSDERMAL
     Route: 062
     Dates: start: 20010101
  2. RELAFEN [Concomitant]
  3. MIACALCIN [Concomitant]
  4. ACCUPRIL [Concomitant]
  5. DEPAKOTE [Concomitant]
  6. CAFERGOT [Concomitant]

REACTIONS (5)
  - BACK PAIN [None]
  - ERYTHEMA [None]
  - HEADACHE [None]
  - PHARMACEUTICAL PRODUCT COMPLAINT [None]
  - RASH [None]
